FAERS Safety Report 8530051-7 (Version None)
Quarter: 2012Q3

REPORT INFORMATION
  Report Type: 
  Country: None (occurrence: None)
  Receive Date: 20120723
  Receipt Date: 20120717
  Transmission Date: 20120928
  Serious: Yes (Hospitalization, Other)
  Sender: FDA-Public Use
  Company Number: PHEH2005US014208

PATIENT
  Sex: Female
  Weight: 71 kg

DRUGS (54)
  1. FOSAMAX [Suspect]
  2. MEGACE [Concomitant]
     Indication: HOT FLUSH
  3. EPOGEN [Concomitant]
  4. TORECAN [Concomitant]
     Dosage: 10 MG, EVERY 4-6 HOURS PRN
     Dates: start: 19970516
  5. PENICILLIN VK [Concomitant]
  6. RESTORIL [Concomitant]
  7. CLARITIN [Concomitant]
  8. ADRIAMYCIN PFS [Concomitant]
     Indication: BREAST CANCER METASTATIC
     Dates: start: 19970501
  9. KYTRIL [Concomitant]
     Indication: PROPHYLAXIS
     Dosage: 1 MG, UNK
  10. ETODOLAC [Concomitant]
     Dosage: 400 MG, Q8H
  11. NASACORT AQ [Concomitant]
  12. COMPAZINE [Concomitant]
  13. AMBIEN [Concomitant]
  14. AREDIA [Suspect]
     Indication: BREAST CANCER METASTATIC
     Dosage: 90 MG, QMO
     Route: 042
     Dates: start: 19960603, end: 20020101
  15. TAGAMET [Concomitant]
     Indication: PROPHYLAXIS
     Dosage: 300 MG, UNK
  16. NEURONTIN [Concomitant]
  17. DILANTIN [Concomitant]
  18. ATIVAN [Concomitant]
  19. ZOMETA [Suspect]
     Dosage: 4 MG  Q3-4 WKS
     Route: 042
     Dates: start: 20020604, end: 20040915
  20. TAXOL [Concomitant]
     Indication: BREAST CANCER METASTATIC
     Dates: start: 19970501
  21. NEUPOGEN [Concomitant]
     Indication: GRANULOCYTE COUNT DECREASED
     Dates: start: 19970801
  22. ULTRAM [Concomitant]
     Indication: DISCOMFORT
  23. ARIMIDEX [Concomitant]
     Indication: BREAST CANCER
     Dosage: 1 MG, QD
  24. FLUOROURACIL [Concomitant]
     Indication: NEOPLASM MALIGNANT
     Dosage: 1050 MG, UNK
  25. BENADRYL [Concomitant]
     Indication: PROPHYLAXIS
     Dosage: 50 MG, UNK
  26. ANZEMET [Concomitant]
  27. MAXALT-MLT [Concomitant]
     Dosage: 10 MG, UNK
  28. MEGESTROL ACETATE [Concomitant]
  29. TORADOL [Concomitant]
  30. PRIMADEX [Concomitant]
  31. TAMOXIFEN CITRATE [Concomitant]
     Indication: BREAST CANCER
     Route: 048
     Dates: start: 19960501
  32. CARBOPLATIN [Concomitant]
     Dosage: 500 MG, ONCE/SINGLE
     Dates: start: 20030731, end: 20030731
  33. CELEBREX [Concomitant]
  34. AVELOX [Concomitant]
  35. DARVOCET-N 50 [Concomitant]
  36. LOMOTIL [Concomitant]
  37. IMITREX [Concomitant]
     Indication: MIGRAINE
  38. CARBOPLATIN [Concomitant]
     Dosage: 100 MG, ONCE/SINGLE
     Dates: start: 20030724, end: 20030724
  39. ALPRAZOLAM [Concomitant]
     Dosage: 0.5 MG, UNK
  40. MS CONTIN [Concomitant]
  41. DURAGESIC-100 [Concomitant]
  42. ATENOLOL [Concomitant]
  43. DECADRON [Concomitant]
     Dosage: 10 MG, UNK
  44. METHOTREXATE [Concomitant]
     Indication: NEOPLASM MALIGNANT
  45. FLUID/ELECTROLYTE REPLACEMENT THERAPY [Concomitant]
     Indication: PROPHYLAXIS
  46. CIMETIDINE [Concomitant]
  47. MITOXANTRONE HYDROCHLORIDE [Concomitant]
  48. TAXOTERE [Concomitant]
     Indication: OVARIAN CANCER
     Dates: start: 20030101, end: 20030101
  49. CARBOPLATIN [Concomitant]
     Indication: OVARIAN CANCER
     Dosage: 200 MG EVERY WEEK FOR 3 WEEKS
     Dates: start: 20030501, end: 20030724
  50. CHEMOTHERAPEUTICS,OTHER [Concomitant]
  51. FLAGYL [Concomitant]
  52. DIFLUCAN [Concomitant]
  53. AMIFOSTINE [Concomitant]
  54. LEVAQUIN [Concomitant]

REACTIONS (100)
  - IMPAIRED HEALING [None]
  - BONE DENSITY DECREASED [None]
  - OSTEOSCLEROSIS [None]
  - BLOOD GLUCOSE INCREASED [None]
  - HAEMATOCHEZIA [None]
  - INTERVERTEBRAL DISC PROTRUSION [None]
  - ONYCHALGIA [None]
  - EAR PAIN [None]
  - ARTHRITIS [None]
  - ENTHESOPATHY [None]
  - PURULENT DISCHARGE [None]
  - TOOTH DISORDER [None]
  - ABDOMINAL PAIN [None]
  - VOMITING [None]
  - ARTHRALGIA [None]
  - EPICONDYLITIS [None]
  - ACCIDENT AT WORK [None]
  - HYPOAESTHESIA [None]
  - STOMATOCYTES PRESENT [None]
  - AGRANULOCYTOSIS [None]
  - BLOOD ALKALINE PHOSPHATASE INCREASED [None]
  - PLATELET COUNT DECREASED [None]
  - HEART VALVE INCOMPETENCE [None]
  - CERVICAL SPINAL STENOSIS [None]
  - EXOSTOSIS [None]
  - CARPAL TUNNEL SYNDROME [None]
  - HYPOAESTHESIA ORAL [None]
  - PARAESTHESIA [None]
  - SPINAL OSTEOARTHRITIS [None]
  - LEFT VENTRICULAR HYPERTROPHY [None]
  - POST LAMINECTOMY SYNDROME [None]
  - DEEP VEIN THROMBOSIS [None]
  - SOFT TISSUE DISORDER [None]
  - OVARIAN CANCER [None]
  - WHITE BLOOD CELL COUNT DECREASED [None]
  - LUNG NEOPLASM MALIGNANT [None]
  - RADICULAR PAIN [None]
  - ASTHENIA [None]
  - SYNOVITIS [None]
  - LIGAMENT RUPTURE [None]
  - STRESS FRACTURE [None]
  - SLEEP DISORDER [None]
  - CHOLELITHIASIS [None]
  - QRS AXIS ABNORMAL [None]
  - RADICULITIS [None]
  - TENDERNESS [None]
  - PRIMARY SEQUESTRUM [None]
  - NAUSEA [None]
  - AORTIC ARTERIOSCLEROSIS [None]
  - OEDEMA MUCOSAL [None]
  - ORAL MUCOSAL ERYTHEMA [None]
  - MUSCULOSKELETAL STIFFNESS [None]
  - SYNOVIAL CYST [None]
  - ATROPHY [None]
  - DISTURBANCE IN ATTENTION [None]
  - GALLBLADDER POLYP [None]
  - OEDEMA PERIPHERAL [None]
  - SWELLING [None]
  - ALPHA HAEMOLYTIC STREPTOCOCCAL INFECTION [None]
  - GINGIVAL BLEEDING [None]
  - COLITIS [None]
  - RIB FRACTURE [None]
  - INJURY [None]
  - INFLAMMATION [None]
  - PARAESTHESIA ORAL [None]
  - OSTEOLYSIS [None]
  - OSTEOARTHRITIS [None]
  - NECK PAIN [None]
  - FOREIGN BODY [None]
  - NEUROPATHY PERIPHERAL [None]
  - RADICULOPATHY [None]
  - GASTROINTESTINAL HAEMORRHAGE [None]
  - CHRONIC SINUSITIS [None]
  - DYSPNOEA [None]
  - OSTEONECROSIS OF JAW [None]
  - BONE DISORDER [None]
  - FISTULA [None]
  - PAIN IN JAW [None]
  - ULCER [None]
  - LIVER FUNCTION TEST ABNORMAL [None]
  - BACTERIAL INFECTION [None]
  - PERIODONTAL DISEASE [None]
  - DIVERTICULUM INTESTINAL [None]
  - ORAL PAIN [None]
  - ONYCHOMYCOSIS [None]
  - TENDONITIS [None]
  - PAIN IN EXTREMITY [None]
  - TENOSYNOVITIS [None]
  - C-REACTIVE PROTEIN INCREASED [None]
  - NEOPLASM [None]
  - ANAEMIA [None]
  - RHINITIS [None]
  - HEPATIC CYST [None]
  - BURSITIS [None]
  - ARTHROSCOPY [None]
  - GAIT DISTURBANCE [None]
  - MULTIPLE FRACTURES [None]
  - OBESITY [None]
  - LUMBAR SPINAL STENOSIS [None]
  - MOBILITY DECREASED [None]
